FAERS Safety Report 20948370 (Version 1)
Quarter: 2022Q2

REPORT INFORMATION
  Report Type: Spontaneous
  Country: FR (occurrence: FR)
  Receive Date: 20220611
  Receipt Date: 20220611
  Transmission Date: 20220721
  Serious: Yes (Other)
  Sender: FDA-Public Use
  Company Number: None

PATIENT
  Age: 40 Year
  Sex: Female
  Weight: 73 kg

DRUGS (5)
  1. PAROXETINE [Suspect]
     Active Substance: PAROXETINE
     Indication: Hormonal contraception
     Dosage: PAROXETINE HYDROCHLORIDE, ANHYDROUS
     Route: 048
     Dates: start: 20210705
  2. RISPERIDONE [Suspect]
     Active Substance: RISPERIDONE
     Indication: Schizoaffective disorder
     Dosage: 3MG, FREQUENCY TIME 1DAYS
     Route: 048
     Dates: start: 20161103
  3. PRAZEPAM [Suspect]
     Active Substance: PRAZEPAM
     Indication: Schizoaffective disorder
     Dosage: 5MG, FREQUENCY TIME1 AS REQUIRED
     Route: 048
     Dates: start: 20200429
  4. ETHINYL ESTRADIOL\LEVONORGESTREL [Suspect]
     Active Substance: ETHINYL ESTRADIOL\LEVONORGESTREL
     Indication: Hormonal contraception
     Dosage: STRENGTH: 20 MICROGRAMS/100 MICROGRAMS
     Route: 048
     Dates: start: 20210728
  5. DOXYLAMINE SUCCINATE [Suspect]
     Active Substance: DOXYLAMINE SUCCINATE
     Indication: Schizoaffective disorder
     Dosage: STRENGTH,UNIT DOSE: 15 MG, FREQUENCY TIME 1DAYS
     Route: 048
     Dates: start: 20210111

REACTIONS (2)
  - Hyperprolactinaemia [Not Recovered/Not Resolved]
  - Weight increased [Not Recovered/Not Resolved]

NARRATIVE: CASE EVENT DATE: 20211201
